FAERS Safety Report 10403148 (Version 1)
Quarter: 2014Q3

REPORT INFORMATION
  Report Type: Spontaneous
  Country: US (occurrence: None)
  Receive Date: 20140821
  Receipt Date: 20140821
  Transmission Date: 20150326
  Serious: Yes (Hospitalization)
  Sender: FDA-Public Use
  Company Number: None

PATIENT
  Age: 73 Year
  Sex: Male
  Weight: 75.57 kg

DRUGS (5)
  1. PALONOSETRON [Concomitant]
     Active Substance: PALONOSETRON
  2. NEULASTA [Suspect]
     Active Substance: PEGFILGRASTIM
     Indication: INFECTION PROPHYLAXIS
     Route: 058
     Dates: start: 20140722
  3. ALIMTA [Concomitant]
     Active Substance: PEMETREXED DISODIUM
  4. CISPLATIN. [Concomitant]
     Active Substance: CISPLATIN
  5. FOSAPREPITANT [Concomitant]
     Active Substance: FOSAPREPITANT

REACTIONS (2)
  - Rash pruritic [None]
  - Rash [None]

NARRATIVE: CASE EVENT DATE: 20140722
